FAERS Safety Report 7083750-0 (Version None)
Quarter: 2010Q4

REPORT INFORMATION
  Report Type: 
  Country: None (occurrence: None)
  Receive Date: 20101103
  Receipt Date: 20101103
  Transmission Date: 20110411
  Serious: Yes (Hospitalization)
  Sender: FDA-Public Use
  Company Number: None

PATIENT
  Age: 66 Year
  Sex: Male
  Weight: 88.5 kg

DRUGS (11)
  1. DECITABINE - 0.2MG / KG SUB-Q INJECTION 2X PER WEEK [Suspect]
     Indication: MYELODYSPLASTIC SYNDROME
     Dosage: .2MG/KG SUB-Q 2X/WK
     Route: 058
     Dates: start: 20100920, end: 20101027
  2. VERAPAMIL [Concomitant]
  3. LORATADINE [Concomitant]
  4. ALLOPURINOL [Concomitant]
  5. ZOCOR [Concomitant]
  6. AMARYL [Concomitant]
  7. PRILOSEC [Concomitant]
  8. MULTI-VITAMIN [Concomitant]
  9. ACTOS [Concomitant]
  10. COMPOUNDED NASAL SPRAY [Concomitant]
  11. EXTRA STRENGTH EXCEDRIN [Concomitant]

REACTIONS (2)
  - FEBRILE NEUTROPENIA [None]
  - WHITE BLOOD CELL COUNT DECREASED [None]
